FAERS Safety Report 20511649 (Version 1)
Quarter: 2022Q1

REPORT INFORMATION
  Report Type: Spontaneous
  Country: US (occurrence: None)
  Receive Date: 20220224
  Receipt Date: 20220224
  Transmission Date: 20220423
  Serious: No
  Sender: FDA-Public Use
  Company Number: 2022A062729

PATIENT
  Sex: Female
  Weight: 37.2 kg

DRUGS (1)
  1. TAGRISSO [Suspect]
     Active Substance: OSIMERTINIB
     Indication: Lung carcinoma cell type unspecified stage I
     Route: 048
     Dates: start: 20210721

REACTIONS (2)
  - Dyspepsia [Unknown]
  - Abdominal pain upper [Unknown]
